FAERS Safety Report 4489285-3 (Version None)
Quarter: 2004Q4

REPORT INFORMATION
  Report Type: 
  Country: None (occurrence: None)
  Receive Date: 20041026
  Receipt Date: 20041008
  Transmission Date: 20050328
  Serious: Yes (Death, Other)
  Sender: FDA-Public Use
  Company Number: 200402381

PATIENT
  Age: 67 Year
  Sex: Female

DRUGS (3)
  1. MILRINONE LACTATE [Suspect]
     Indication: CARDIAC SARCOIDOSIS
     Dosage: 0.75 MCG/KG   (AT ONSET OF VT)    IV
     Route: 042
  2. DOPAMINE HYDROCHLORIDE [Concomitant]
  3. HERCARENONE D           (DOBUTAMINE HYDROCHLORIDE) [Concomitant]

REACTIONS (2)
  - VENTRICULAR FIBRILLATION [None]
  - VENTRICULAR TACHYCARDIA [None]
